FAERS Safety Report 5669491-2 (Version None)
Quarter: 2008Q1

REPORT INFORMATION
  Report Type: 
  Country: None (occurrence: None)
  Receive Date: 20080312
  Receipt Date: 20080312
  Transmission Date: 20080703
  Serious: Yes (Hospitalization)
  Sender: FDA-Public Use
  Company Number: None

PATIENT
  Age: 17 Year
  Sex: Male
  Weight: 67 kg

DRUGS (10)
  1. CYTARABINE [Suspect]
     Indication: NON-HODGKIN'S LYMPHOMA
     Dosage: 5.7GM Q 12H IV
     Route: 042
     Dates: start: 20080227, end: 20080228
  2. RANITIDINE [Concomitant]
  3. CALC. CARBONATE [Concomitant]
  4. BACTRIM [Concomitant]
  5. FLUCONAZOLE [Concomitant]
  6. ACYCLOVIR [Concomitant]
  7. ONDANSETRON [Concomitant]
  8. LORAZEPAM [Concomitant]
  9. BENADRYL [Concomitant]
  10. PROMETHAZINE [Concomitant]

REACTIONS (4)
  - HYPOTENSION [None]
  - INFUSION RELATED REACTION [None]
  - PYREXIA [None]
  - SHOCK [None]
